FAERS Safety Report 18248388 (Version 1)
Quarter: 2020Q3

REPORT INFORMATION
  Report Type: Report from Study
  Country: FR (occurrence: FR)
  Receive Date: 20200909
  Receipt Date: 20200909
  Transmission Date: 20201103
  Serious: Yes (Hospitalization)
  Sender: FDA-Public Use
  Company Number: FR-JNJFOC-20190302030

PATIENT
  Age: 17 Year
  Sex: Female
  Weight: 49 kg

DRUGS (3)
  1. PREDNISONE. [Concomitant]
     Active Substance: PREDNISONE
     Route: 065
  2. REMICADE [Suspect]
     Active Substance: INFLIXIMAB
     Indication: CROHN^S DISEASE
     Route: 042
     Dates: start: 20130120
  3. IMATINIB. [Concomitant]
     Active Substance: IMATINIB MESYLATE
     Route: 065

REACTIONS (1)
  - Anal stenosis [Not Recovered/Not Resolved]

NARRATIVE: CASE EVENT DATE: 20180124
